FAERS Safety Report 7655269-7 (Version None)
Quarter: 2011Q3

REPORT INFORMATION
  Report Type: 
  Country: None (occurrence: None)
  Receive Date: 20110804
  Receipt Date: 20110726
  Transmission Date: 20111222
  Serious: Yes (Hospitalization)
  Sender: FDA-Public Use
  Company Number: US-JNJFOC-20110711801

PATIENT
  Sex: Male
  Weight: 113.4 kg

DRUGS (1)
  1. REMICADE [Suspect]
     Indication: RHEUMATOID ARTHRITIS
     Route: 042

REACTIONS (14)
  - WEIGHT DECREASED [None]
  - DYSPNOEA [None]
  - RASH [None]
  - CARDIAC VALVE DISEASE [None]
  - DYSSTASIA [None]
  - RENAL DISORDER [None]
  - DRUG DOSE OMISSION [None]
  - MYOCARDIAL INFARCTION [None]
  - INFECTION [None]
  - DIALYSIS [None]
  - ABDOMINAL DISTENSION [None]
  - PNEUMONIA [None]
  - INJECTION SITE HAEMATOMA [None]
  - PAIN [None]
